FAERS Safety Report 5011397-6 (Version None)
Quarter: 2006Q2

REPORT INFORMATION
  Report Type: 
  Country: None (occurrence: None)
  Receive Date: 20060404
  Receipt Date: 20051103
  Transmission Date: 20061013
  Serious: No
  Sender: FDA-Public Use
  Company Number: US_0511123828

PATIENT
  Age: 85 Year
  Sex: Female

DRUGS (3)
  1. CYMBALTA [Suspect]
     Dosage: 60 MG
  2. PAXIL [Concomitant]
  3. TYLENOL W/ CODEINE [Concomitant]

REACTIONS (2)
  - HALLUCINATION, VISUAL [None]
  - PARANOIA [None]
